FAERS Safety Report 4335442-6 (Version None)
Quarter: 2004Q2

REPORT INFORMATION
  Report Type: 
  Country: None (occurrence: None)
  Receive Date: 20040402
  Receipt Date: 20040122
  Transmission Date: 20050107
  Serious: No
  Sender: FDA-Public Use
  Company Number: PC-04-001

PATIENT
  Age: 57 Year
  Sex: Female

DRUGS (2)
  1. IMAGENT [Suspect]
     Dosage: 0.125 MG/KG ONE BOLUS
     Route: 040
     Dates: start: 20031215, end: 20031215
  2. BENADRYL [Concomitant]

REACTIONS (1)
  - HYPERSENSITIVITY [None]
